FAERS Safety Report 11505605 (Version 1)
Quarter: 2015Q3

REPORT INFORMATION
  Report Type: Spontaneous
  Country: US (occurrence: US)
  Receive Date: 20150915
  Receipt Date: 20150915
  Transmission Date: 20151125
  Serious: No
  Sender: FDA-Public Use
  Company Number: US-ROCHE-740640

PATIENT
  Age: 55 Year
  Sex: Female

DRUGS (5)
  1. RIBASPHERE [Suspect]
     Active Substance: RIBAVIRIN
     Indication: HEPATITIS C
     Dosage: IN DIVIDED DOSES
     Route: 065
     Dates: start: 20101025, end: 20110404
  2. PROZAC [Concomitant]
     Active Substance: FLUOXETINE HYDROCHLORIDE
     Route: 065
  3. VALIUM [Concomitant]
     Active Substance: DIAZEPAM
     Route: 065
  4. ATIVAN [Concomitant]
     Active Substance: LORAZEPAM
     Route: 065
  5. PEGASYS [Suspect]
     Active Substance: PEGINTERFERON ALFA-2A
     Indication: HEPATITIS C
     Route: 065
     Dates: start: 20101025, end: 20110404

REACTIONS (23)
  - Pruritus [Recovering/Resolving]
  - Decreased appetite [Unknown]
  - Vulvovaginal mycotic infection [Not Recovered/Not Resolved]
  - Syncope [Unknown]
  - Eye irritation [Unknown]
  - Back pain [Unknown]
  - Oral fungal infection [Not Recovered/Not Resolved]
  - Burning sensation [Unknown]
  - Hypotension [Unknown]
  - Pyrexia [Not Recovered/Not Resolved]
  - Anaemia [Unknown]
  - Stomatitis [Not Recovered/Not Resolved]
  - Tooth fracture [Unknown]
  - Influenza like illness [Unknown]
  - Asthenia [Unknown]
  - Rash [Unknown]
  - Fall [Unknown]
  - Weight decreased [Unknown]
  - Fatigue [Unknown]
  - Mood swings [Unknown]
  - Pain [Unknown]
  - Body temperature increased [Unknown]
  - Injection site erythema [Unknown]

NARRATIVE: CASE EVENT DATE: 201010
